FAERS Safety Report 4482382-8 (Version None)
Quarter: 2004Q4

REPORT INFORMATION
  Report Type: 
  Country: None (occurrence: None)
  Receive Date: 20041022
  Receipt Date: 20031030
  Transmission Date: 20050328
  Serious: No
  Sender: FDA-Public Use
  Company Number: US-BRISTOL-MYERS SQUIBB COMPANY-12422549

PATIENT
  Age: 91 Year
  Sex: Male
  Weight: 57 kg

DRUGS (3)
  1. BUSPAR [Suspect]
     Indication: ANXIETY
     Dosage: DURATION: ^SEVERAL MONTHS^
     Route: 048
     Dates: start: 20030101, end: 20030101
  2. LASIX [Concomitant]
  3. BLOOD PRESSURE MEDICINE [Concomitant]

REACTIONS (1)
  - DROOLING [None]
